FAERS Safety Report 9395838 (Version 2)
Quarter: 2013Q3

REPORT INFORMATION
  Report Type: Spontaneous
  Country: US (occurrence: US)
  Receive Date: 20130711
  Receipt Date: 20130808
  Transmission Date: 20140515
  Serious: Yes (Other)
  Sender: FDA-Public Use
  Company Number: US-GLAXOSMITHKLINE-A1029819A

PATIENT
  Age: 67 Year
  Sex: Female

DRUGS (2)
  1. ADVAIR [Suspect]
     Indication: DYSPNOEA
     Dosage: 1PUFF PER DAY
     Route: 055
     Dates: start: 2012
  2. UNKNOWN [Concomitant]

REACTIONS (3)
  - Choking [Recovered/Resolved]
  - Pneumonia [Recovered/Resolved]
  - Product quality issue [Unknown]
